FAERS Safety Report 4648745-2 (Version None)
Quarter: 2005Q2

REPORT INFORMATION
  Report Type: 
  Country: None (occurrence: None)
  Receive Date: 20050427
  Receipt Date: 20050420
  Transmission Date: 20051028
  Serious: Yes (Other)
  Sender: FDA-Public Use
  Company Number: 200510806BWH

PATIENT
  Sex: Female

DRUGS (2)
  1. AVELOX [Suspect]
     Dosage: SEE IMAGE
     Route: 048
     Dates: start: 20050219
  2. AVELOX [Suspect]
     Dosage: SEE IMAGE
     Route: 048
     Dates: start: 20050413

REACTIONS (2)
  - DYSPNOEA [None]
  - RESPIRATORY ARREST [None]
